FAERS Safety Report 21280617 (Version 1)
Quarter: 2022Q3

REPORT INFORMATION
  Report Type: Spontaneous
  Country: AU (occurrence: AU)
  Receive Date: 20220901
  Receipt Date: 20220901
  Transmission Date: 20221027
  Serious: Yes (Other)
  Sender: FDA-Public Use
  Company Number: AU-MYLANLABS-2022M1090305

PATIENT
  Age: 71 Year
  Sex: Female

DRUGS (2)
  1. DOCETAXEL [Suspect]
     Active Substance: DOCETAXEL
     Indication: Salvage therapy
     Dosage: 37.5 MILLIGRAM, EVERY 6 WEEKS, 6-WEEKLY INDUCTION INSTILLATIONS
     Route: 043
  2. GEMCITABINE [Suspect]
     Active Substance: GEMCITABINE
     Indication: Salvage therapy
     Dosage: 1 GRAM EVERY 6 WEEKS, 6-WEEKLY INDUCTION INSTILLATIONS
     Route: 043

REACTIONS (1)
  - Drug ineffective [Unknown]
